FAERS Safety Report 22658148 (Version 6)
Quarter: 2024Q1

REPORT INFORMATION
  Report Type: Report from Study
  Country: US (occurrence: US)
  Receive Date: 20230630
  Receipt Date: 20240109
  Transmission Date: 20240410
  Serious: Yes (Other)
  Sender: FDA-Public Use
  Company Number: US-002147023-NVSC2023US148552

PATIENT
  Age: 40 Year
  Sex: Male

DRUGS (3)
  1. VIJOICE [Suspect]
     Active Substance: ALPELISIB
     Indication: PIK3CA related overgrowth spectrum
     Dosage: 125 MG, QD
     Route: 048
     Dates: start: 202304, end: 20230807
  2. VIJOICE [Suspect]
     Active Substance: ALPELISIB
     Dosage: 125 MG/KG, QD
     Route: 048
  3. VIJOICE [Suspect]
     Active Substance: ALPELISIB
     Dosage: 175 MG, QD
     Route: 048
     Dates: start: 202310

REACTIONS (4)
  - Haemorrhage [Unknown]
  - Product use issue [Unknown]
  - Product availability issue [Unknown]
  - Product dose omission issue [Unknown]

NARRATIVE: CASE EVENT DATE: 20230401
